FAERS Safety Report 4318170-2 (Version None)
Quarter: 2004Q1

REPORT INFORMATION
  Report Type: 
  Country: None (occurrence: None)
  Receive Date: 20040317
  Receipt Date: 20040312
  Transmission Date: 20041129
  Serious: Yes (Hospitalization)
  Sender: FDA-Public Use
  Company Number: JP-ROCHE-361803

PATIENT
  Age: 34 Year
  Sex: Male

DRUGS (2)
  1. TAMIFLU [Suspect]
     Route: 048
     Dates: start: 20040227, end: 20040228
  2. ACETAMINOPHEN [Concomitant]
     Route: 048
     Dates: start: 20040227, end: 20040228

REACTIONS (3)
  - ENTERITIS [None]
  - GASTROINTESTINAL ISCHAEMIA [None]
  - MELAENA [None]
